FAERS Safety Report 19598435 (Version 1)
Quarter: 2021Q3

REPORT INFORMATION
  Report Type: Spontaneous
  Country: FR (occurrence: FR)
  Receive Date: 20210723
  Receipt Date: 20210723
  Transmission Date: 20211014
  Serious: Yes (Hospitalization)
  Sender: FDA-Public Use
  Company Number: FR-SUN PHARMACEUTICAL INDUSTRIES LTD-2021RR-305430

PATIENT
  Age: 46 Year
  Sex: Female
  Weight: 39.1 kg

DRUGS (14)
  1. AZITHROMYCIN ANHYDROUS. [Suspect]
     Active Substance: AZITHROMYCIN ANHYDROUS
     Indication: MYCOBACTERIAL INFECTION
     Dosage: 250 MILLIGRAM, DAILY
     Route: 048
     Dates: start: 20210503
  2. TARDYFERON [Concomitant]
     Active Substance: FERROUS SULFATE
     Indication: VITAMIN SUPPLEMENTATION
     Dosage: 2 DOSAGE FORM, DAILY, LONG?TERM
     Route: 048
  3. FUNGIZONE [Concomitant]
     Active Substance: AMPHOTERICIN B
     Indication: ANTIFUNGAL PROPHYLAXIS
     Dosage: 3 DOSAGE FORM, DAILY, LONG?TERM: 3 MOUTHWASHES / DAY
     Route: 048
  4. VENTOLINE 2,5 MG/2,5 ML, SOLUTION POUR INHALATION PAR NEBULISEUR [Concomitant]
     Indication: CYSTIC FIBROSIS
     Dosage: 2 DOSAGE FORM, DAILY, LONG?TERM
     Route: 055
  5. INNOVAIR 200/6 MICROGRAMMES/DOSE, SOLUTION POUR INHALATION [Concomitant]
     Indication: CYSTIC FIBROSIS
     Dosage: 4 DOSAGE FORM, DAILY, LONG?TERM
     Route: 055
  6. CREON 12000 U, GRANULES GASTRO?RESISTANTS EN GELULE [Concomitant]
     Indication: CYSTIC FIBROSIS
     Dosage: 5 DOSAGE FORM, DAILY, LONG?TERM
     Route: 048
  7. AMIKACINE [Suspect]
     Active Substance: AMIKACIN
     Indication: MYCOBACTERIAL INFECTION
     Dosage: 1 GRAM, DAILY
     Route: 042
     Dates: start: 20210503
  8. INEXIUM 40 MG, COMPRIME GASTRO?RESISTANT [Concomitant]
     Active Substance: ESOMEPRAZOLE MAGNESIUM
     Indication: GASTRITIS PROPHYLAXIS
     Dosage: 40 MILLIGRAM, DAILY, LONG?TERM
     Route: 048
  9. PULMOZYME 2500 U/2,5 ML, SOLUTION POUR INHALATION PAR NEBULISEUR [Concomitant]
     Indication: CYSTIC FIBROSIS
     Dosage: 1 DOSAGE FORM, DAILY, LONG?TERM
     Route: 055
  10. TIENAM [Suspect]
     Active Substance: CILASTATIN SODIUM\IMIPENEM
     Indication: MYCOBACTERIAL INFECTION
     Dosage: 3 GRAM, DAILY
     Route: 042
     Dates: start: 20210503
  11. UVEDOSE [Concomitant]
     Active Substance: CHOLECALCIFEROL
     Indication: VITAMIN D DEFICIENCY
     Dosage: LONG?TERM
     Route: 065
  12. LAMPRENE [Suspect]
     Active Substance: CLOFAZIMINE
     Indication: MYCOBACTERIAL INFECTION
     Dosage: 1 DOSAGE FORM, DAILY, 50 MG/DAY
     Route: 048
     Dates: start: 20210503
  13. LINEZOLIDE [Suspect]
     Active Substance: LINEZOLID
     Indication: MYCOBACTERIAL INFECTION
     Dosage: 600 MILLIGRAM, DAILY
     Route: 048
     Dates: start: 20210503
  14. A 313 [Concomitant]
     Active Substance: RETINOL
     Indication: VITAMIN SUPPLEMENTATION
     Dosage: 2 DOSAGE FORM, WEEKLY, LONG?TERM
     Route: 048

REACTIONS (1)
  - Cardiac failure acute [Recovering/Resolving]

NARRATIVE: CASE EVENT DATE: 20210530
